FAERS Safety Report 4358074-2 (Version None)
Quarter: 2004Q2

REPORT INFORMATION
  Report Type: 
  Country: None (occurrence: None)
  Receive Date: 20040510
  Receipt Date: 20040422
  Transmission Date: 20050107
  Serious: Yes (Hospitalization)
  Sender: FDA-Public Use
  Company Number: 196625

PATIENT
  Age: 60 Year
  Sex: Female
  Weight: 92.9874 kg

DRUGS (6)
  1. AVONEX [Suspect]
     Indication: MULTIPLE SCLEROSIS
     Dosage: 30 MCG QW IM
     Route: 030
     Dates: start: 19960101, end: 20040101
  2. AVONEX [Suspect]
     Indication: MULTIPLE SCLEROSIS
     Dosage: 30 MCG QW IM
     Route: 030
     Dates: start: 20040101
  3. AMARYL [Concomitant]
  4. GLUCOPHAGE ^UNS^ [Concomitant]
  5. AVANDIA [Concomitant]
  6. PROZAC [Concomitant]

REACTIONS (14)
  - BALANCE DISORDER [None]
  - CEREBROVASCULAR ACCIDENT [None]
  - COMA [None]
  - CONDITION AGGRAVATED [None]
  - DECUBITUS ULCER [None]
  - FALL [None]
  - FOOT FRACTURE [None]
  - HYPERTENSION [None]
  - INTESTINAL GANGRENE [None]
  - MULTIPLE SCLEROSIS [None]
  - UPPER LIMB FRACTURE [None]
  - VOLVULUS OF BOWEL [None]
  - WHITE BLOOD CELL COUNT DECREASED [None]
  - WRIST FRACTURE [None]
